FAERS Safety Report 8533811-1 (Version None)
Quarter: 2012Q3

REPORT INFORMATION
  Report Type: 
  Country: None (occurrence: None)
  Receive Date: 20120724
  Receipt Date: 20120718
  Transmission Date: 20120928
  Serious: No
  Sender: FDA-Public Use
  Company Number: US-009507513-1207USA006601

PATIENT

DRUGS (1)
  1. PROPECIA [Suspect]
     Indication: ANDROGENETIC ALOPECIA
     Dosage: UNK
     Dates: start: 20050201

REACTIONS (2)
  - SEXUAL DYSFUNCTION [None]
  - COGNITIVE DISORDER [None]
